FAERS Safety Report 7570183-3 (Version None)
Quarter: 2011Q2

REPORT INFORMATION
  Report Type: 
  Country: None (occurrence: None)
  Receive Date: 20110624
  Receipt Date: 20110613
  Transmission Date: 20111010
  Serious: Yes (Death, Other)
  Sender: FDA-Public Use
  Company Number: US-BRISTOL-MYERS SQUIBB COMPANY-15848237

PATIENT
  Age: 44 Year
  Sex: Female

DRUGS (2)
  1. FLUDARABINE PHOSPHATE [Suspect]
     Indication: MALIGNANT MELANOMA
  2. CYCLOPHOSPHAMIDE [Suspect]
     Indication: MALIGNANT MELANOMA

REACTIONS (2)
  - PREMATURE MENOPAUSE [None]
  - NEOPLASM MALIGNANT [None]
